FAERS Safety Report 14350813 (Version 2)
Quarter: 2020Q3

REPORT INFORMATION
  Report Type: Spontaneous
  Country: NO (occurrence: NO)
  Receive Date: 20180104
  Receipt Date: 20200702
  Transmission Date: 20201102
  Serious: Yes (Life-Threatening)
  Sender: FDA-Public Use
  Company Number: NO-009507513-1712NOR012536

PATIENT
  Age: 70 Year
  Sex: Female

DRUGS (11)
  1. SEDIX [Suspect]
     Active Substance: HERBALS\HOMEOPATHICS\PASSIFLORA INCARNATA FLOWER
     Indication: ANXIETY
  2. ALBYL?E [Concomitant]
     Active Substance: ASPIRIN\MAGNESIUM OXIDE
     Dosage: 75 MILLIGRAM, QD
     Route: 048
  3. IMOVANE [Concomitant]
     Active Substance: ZOPICLONE
     Dosage: 3,75 MILLIGRAM (1/2 TABLET OF 7.5 MG) AS REQUIRED
     Route: 048
  4. COZAAR COMP FORTE 100 MG/25 MG [Suspect]
     Active Substance: HYDROCHLOROTHIAZIDE\LOSARTAN POTASSIUM
     Indication: ESSENTIAL HYPERTENSION
     Dosage: 1 DOSAGE FORM, QD (STRENGTH: 100/25 MG) (FORMULATION: FILM?COATED TABLET)
     Route: 048
     Dates: start: 1985, end: 20171012
  5. SPIRIVA [Concomitant]
     Active Substance: TIOTROPIUM BROMIDE MONOHYDRATE
     Dosage: 18 MICROGRAM, QD
     Route: 055
  6. PARACET [Concomitant]
     Active Substance: ACETAMINOPHEN
     Dosage: 500 MILLIGRAM, AS NECESSARY (500 MG UP TO 3 TIMES DAILY)
     Route: 048
  7. SOBRIL [Concomitant]
     Active Substance: OXAZEPAM
     Dosage: 10 MILLIGRAM, AS NECESSARY
     Route: 048
  8. SIMVASTATIN. [Concomitant]
     Active Substance: SIMVASTATIN
     Dosage: 20 MILLIGRAM, QD
     Route: 048
  9. SEDIX [Suspect]
     Active Substance: HERBALS\HOMEOPATHICS\PASSIFLORA INCARNATA FLOWER
     Indication: SLEEP DISORDER
     Dosage: 200 MILLIGRAM (THE PATIENT HAS TAKEN VARIABLE DOSES OF PASSIONFLOWER (SEDIX), BUT LARGER DOSES IN TH
     Route: 048
     Dates: start: 201707, end: 20171012
  10. DULCOLAX NOS [Concomitant]
     Active Substance: BISACODYL OR DOCUSATE SODIUM
     Dosage: 5 MILLIGRAM, QD
     Route: 048
  11. GLUCOPHAGE [Concomitant]
     Active Substance: METFORMIN HYDROCHLORIDE
     Dosage: 500 MILLIGRAM, QD
     Route: 048
     Dates: end: 20171012

REACTIONS (4)
  - Drug interaction [Recovered/Resolved]
  - Hyponatraemia [Recovered/Resolved]
  - Hypoosmolar state [Recovered/Resolved]
  - Herbal toxicity [Recovered/Resolved]

NARRATIVE: CASE EVENT DATE: 20171012
